FAERS Safety Report 19006479 (Version 1)
Quarter: 2021Q1

REPORT INFORMATION
  Report Type: Spontaneous
  Country: US (occurrence: US)
  Receive Date: 20210311
  Receipt Date: 20210311
  Transmission Date: 20210420
  Serious: No
  Sender: FDA-Public Use
  Company Number: None

PATIENT
  Age: 77 Year
  Sex: Female

DRUGS (32)
  1. BUMETANIDE. [Concomitant]
     Active Substance: BUMETANIDE
  2. LOSARTAN POT [Concomitant]
     Active Substance: LOSARTAN POTASSIUM
  3. LUMIGAN [Concomitant]
     Active Substance: BIMATOPROST
  4. MONTELUKAST [Concomitant]
     Active Substance: MONTELUKAST SODIUM
  5. URSODIOL. [Concomitant]
     Active Substance: URSODIOL
  6. ESBRIET [Suspect]
     Active Substance: PIRFENIDONE
     Indication: IDIOPATHIC PULMONARY FIBROSIS
     Route: 048
     Dates: start: 20181006
  7. BUSPIRONE [Concomitant]
     Active Substance: BUSPIRONE HYDROCHLORIDE
  8. MAGNESIUM OX [Concomitant]
  9. ONDANSETRON [Concomitant]
     Active Substance: ONDANSETRON
  10. RHOPRESSA [Concomitant]
     Active Substance: NETARSUDIL MESYLATE
  11. TRELEGY ELIPT [Concomitant]
  12. BENZONATATE. [Concomitant]
     Active Substance: BENZONATATE
  13. CEFDINIR. [Concomitant]
     Active Substance: CEFDINIR
  14. DIGOXIN. [Concomitant]
     Active Substance: DIGOXIN
  15. FOLBEE [Concomitant]
     Active Substance: CYANOCOBALAMIN\FOLIC ACID\PYRIDOXINE HYDROCHLORIDE
  16. METOLAZONE. [Concomitant]
     Active Substance: METOLAZONE
  17. METRONIDAZOL [Concomitant]
     Active Substance: METRONIDAZOLE
  18. OMEPRAZOLE. [Concomitant]
     Active Substance: OMEPRAZOLE
  19. ROPINROLE [Concomitant]
     Active Substance: ROPINIROLE
  20. ATORVASTATIN [Concomitant]
     Active Substance: ATORVASTATIN
  21. FAMOTIDINE. [Concomitant]
     Active Substance: FAMOTIDINE
  22. METOPROL TAR [Concomitant]
  23. MULTAQ [Concomitant]
     Active Substance: DRONEDARONE
  24. DOXYCYCL HYC [Concomitant]
  25. HYDRALAZINE [Concomitant]
     Active Substance: HYDRALAZINE HYDROCHLORIDE
  26. CYCLOBENZAPR [Concomitant]
     Active Substance: CYCLOBENZAPRINE
  27. ELIQUIS [Concomitant]
     Active Substance: APIXABAN
  28. HYDROCO/APAP [Concomitant]
     Active Substance: ACETAMINOPHEN\HYDROCODONE
  29. LEVOFLOXACIN. [Concomitant]
     Active Substance: LEVOFLOXACIN
  30. LIDOCAINE. [Concomitant]
     Active Substance: LIDOCAINE
  31. JANUMET XR [Concomitant]
     Active Substance: METFORMIN HYDROCHLORIDE\SITAGLIPTIN PHOSPHATE
  32. SUCRALFATE. [Concomitant]
     Active Substance: SUCRALFATE

REACTIONS (2)
  - Renal failure [None]
  - Cardiac disorder [None]

NARRATIVE: CASE EVENT DATE: 20210225
